FAERS Safety Report 6278564-5 (Version None)
Quarter: 2009Q3

REPORT INFORMATION
  Report Type: 
  Country: None (occurrence: None)
  Receive Date: 20090722
  Receipt Date: 20080919
  Transmission Date: 20100115
  Serious: No
  Sender: FDA-Public Use
  Company Number: US-BAUSCH-2008BL004107

PATIENT
  Age: 74 Year
  Sex: Female
  Weight: 61 kg

DRUGS (6)
  1. OPCON-A [Suspect]
     Indication: EYE PRURITUS
     Route: 047
     Dates: start: 20080918, end: 20080918
  2. COGENTIN /UNK/ [Concomitant]
  3. TRAZODONE [Concomitant]
  4. LEXAPRO [Concomitant]
  5. ZANTAC [Concomitant]
  6. KLONOPIN [Concomitant]

REACTIONS (1)
  - EYE PAIN [None]
